FAERS Safety Report 10792457 (Version 1)
Quarter: 2015Q1

REPORT INFORMATION
  Report Type: Spontaneous
  Country: CA (occurrence: None)
  Receive Date: 20150211
  Receipt Date: 20150211
  Transmission Date: 20150721
  Serious: Yes (Death, Hospitalization)
  Sender: FDA-Public Use
  Company Number: CA-2010VAL000132

PATIENT
  Age: 8 Month
  Sex: Male

DRUGS (15)
  1. TACROLIMUS. [Concomitant]
     Active Substance: TACROLIMUS
  2. FUROSEMIDE. [Concomitant]
     Active Substance: FUROSEMIDE
  3. CALCITRIOL. [Suspect]
     Active Substance: CALCITRIOL
     Indication: PRODUCT USED FOR UNKNOWN INDICATION
  4. TOPIRAMATE. [Concomitant]
     Active Substance: TOPIRAMATE
  5. ETHACRYNIC ACID [Concomitant]
     Active Substance: ETHACRYNIC ACID
  6. DOMPERIDONE [Concomitant]
     Active Substance: DOMPERIDONE
  7. ARANESP [Suspect]
     Active Substance: DARBEPOETIN ALFA
     Indication: CHRONIC KIDNEY DISEASE
     Dosage: FOR 29 DAYS (10 UG, 1 IN 5 D), SUBCUTANEOUS
     Route: 058
     Dates: start: 200903
  8. ENALAPRIL [Concomitant]
     Active Substance: ENALAPRIL
  9. SPIRONOLACTONE AND HYDROCHLOROTHIAZIDE [Concomitant]
     Active Substance: HYDROCHLOROTHIAZIDE\SPIRONOLACTONE
  10. METOLAZONE. [Concomitant]
     Active Substance: METOLAZONE
  11. SODIUM CHLORIDE. [Concomitant]
     Active Substance: SODIUM CHLORIDE
  12. LEVETIRACETAM. [Concomitant]
     Active Substance: LEVETIRACETAM
  13. OMEPRAZOLE. [Concomitant]
     Active Substance: OMEPRAZOLE
  14. CELLCEPT [Suspect]
     Active Substance: MYCOPHENOLATE MOFETIL\MYCOPHENOLATE MOFETIL HYDROCHLORIDE
     Indication: PROPHYLAXIS AGAINST TRANSPLANT REJECTION
     Route: 048
     Dates: end: 20090612
  15. CLOBAZAM [Concomitant]
     Active Substance: CLOBAZAM

REACTIONS (15)
  - No therapeutic response [None]
  - Staphylococcal infection [None]
  - Subclavian vein thrombosis [None]
  - Aplasia pure red cell [None]
  - Wheezing [None]
  - Enterococcal infection [None]
  - Aspiration [None]
  - Developmental delay [None]
  - Vena cava thrombosis [None]
  - Jugular vein thrombosis [None]
  - Respiratory distress [None]
  - Seizure [None]
  - Transplant rejection [None]
  - Device related infection [None]
  - Peripheral artery thrombosis [None]

NARRATIVE: CASE EVENT DATE: 200903
